FAERS Safety Report 9649629 (Version 3)
Quarter: 2014Q1

REPORT INFORMATION
  Report Type: Spontaneous
  Country: US (occurrence: US)
  Receive Date: 20131028
  Receipt Date: 20140226
  Transmission Date: 20141002
  Serious: Yes (Other)
  Sender: FDA-Public Use
  Company Number: US-009507513-1310USA001780

PATIENT
  Sex: Male

DRUGS (3)
  1. ASMANEX TWISTHALER [Suspect]
     Indication: ASTHMA
     Dosage: 1 DF, QD
     Route: 055
     Dates: start: 201301, end: 201308
  2. ASMANEX TWISTHALER [Suspect]
     Dosage: 1 DF, QD
     Route: 055
     Dates: start: 201308
  3. ZYRTEC [Suspect]
     Route: 048

REACTIONS (8)
  - Drooling [Recovered/Resolved]
  - Nasal disorder [Recovered/Resolved]
  - Eye disorder [Recovered/Resolved]
  - Dyspnoea [Recovered/Resolved]
  - Cough [Recovered/Resolved]
  - Poor quality drug administered [Unknown]
  - Product quality issue [Unknown]
  - Overdose [Unknown]
